FAERS Safety Report 8400460-5 (Version None)
Quarter: 2012Q2

REPORT INFORMATION
  Report Type: 
  Country: None (occurrence: None)
  Receive Date: 20120531
  Receipt Date: 20120522
  Transmission Date: 20120825
  Serious: Yes (Hospitalization)
  Sender: FDA-Public Use
  Company Number: US-SHIRE-ALL1-2012-02578

PATIENT
  Sex: Male

DRUGS (9)
  1. VYVANSE [Suspect]
     Dosage: 50 MG, UNKNOWN
     Route: 048
     Dates: start: 20120502, end: 20120501
  2. VYVANSE [Suspect]
     Dosage: 50 MG, UNKNOWN
     Route: 048
     Dates: start: 20110101, end: 20120401
  3. FLONASE [Concomitant]
     Indication: PRODUCT USED FOR UNKNOWN INDICATION
     Dosage: UNK UNK, UNKNOWN
     Route: 065
  4. ZYRTEC [Concomitant]
     Indication: PRODUCT USED FOR UNKNOWN INDICATION
     Dosage: UNK UNK, UNKNOWN
     Route: 065
  5. VYVANSE [Suspect]
     Dosage: 70 MG, 1X/DAY:QD
     Route: 048
     Dates: start: 20100101, end: 20110101
  6. VYVANSE [Suspect]
     Dosage: 50 MG, UNKNOWN
     Route: 048
     Dates: start: 20100901, end: 20100101
  7. VYVANSE [Suspect]
     Indication: ATTENTION DEFICIT/HYPERACTIVITY DISORDER
     Dosage: 30 MG, UNKNOWN
     Route: 048
     Dates: start: 20100501, end: 20100901
  8. VYVANSE [Suspect]
     Dosage: 70 MG, UNKNOWN
     Route: 048
     Dates: start: 20120401, end: 20120401
  9. ABILIFY [Concomitant]
     Indication: PRODUCT USED FOR UNKNOWN INDICATION
     Dosage: UNK UNK, UNKNOWN
     Route: 065

REACTIONS (4)
  - AGGRESSION [None]
  - PHYSICAL ASSAULT [None]
  - INTENTIONAL DRUG MISUSE [None]
  - INCORRECT DOSE ADMINISTERED [None]
